FAERS Safety Report 4800215-4 (Version None)
Quarter: 2005Q4

REPORT INFORMATION
  Report Type: 
  Country: None (occurrence: None)
  Receive Date: 20051013
  Receipt Date: 20051007
  Transmission Date: 20060501
  Serious: Yes (Hospitalization)
  Sender: FDA-Public Use
  Company Number: 200510631BFR

PATIENT
  Age: 28 Year
  Sex: Male
  Weight: 65 kg

DRUGS (9)
  1. CIPROFLOXACIN HCL [Suspect]
     Indication: FEBRILE BONE MARROW APLASIA
     Dosage: 400 MG, BID, INTRAVENOUS
     Route: 042
     Dates: start: 20050629, end: 20050703
  2. SPASFON [Suspect]
     Indication: FEBRILE BONE MARROW APLASIA
     Dosage: TID, INTRAVENOUS
     Route: 042
     Dates: start: 20050622, end: 20050702
  3. FORTUM [Concomitant]
  4. ZOVIRAX [Concomitant]
  5. VANCOMYCIN [Concomitant]
  6. AMPHOTERICIN B [Concomitant]
  7. CISPLATIN [Concomitant]
  8. FLUOROURACIL [Concomitant]
  9. TAXOTERE [Concomitant]

REACTIONS (1)
  - CEREBELLAR SYNDROME [None]
